FAERS Safety Report 4876535-4 (Version None)
Quarter: 2006Q1

REPORT INFORMATION
  Report Type: 
  Country: None (occurrence: None)
  Receive Date: 20060110
  Receipt Date: 20060103
  Transmission Date: 20060701
  Serious: Yes (Hospitalization)
  Sender: FDA-Public Use
  Company Number: 2006 0002

PATIENT
  Age: 39 Year
  Sex: Male

DRUGS (6)
  1. RANIPLEX [Suspect]
     Route: 048
     Dates: start: 20050506, end: 20050508
  2. CELOCURINE [Concomitant]
     Route: 042
     Dates: start: 20050506
  3. DIPRIVAN [Concomitant]
     Route: 042
     Dates: start: 20050506
  4. NIMBEX [Concomitant]
     Route: 042
     Dates: start: 20050506
  5. SUFENTA [Concomitant]
     Route: 042
     Dates: start: 20050506
  6. MORPHINE [Concomitant]
     Route: 048
     Dates: start: 20050506, end: 20050508

REACTIONS (2)
  - RASH MACULO-PAPULAR [None]
  - SKIN TEST POSITIVE [None]
